FAERS Safety Report 20299699 (Version 1)
Quarter: 2022Q1

REPORT INFORMATION
  Report Type: Spontaneous
  Country: US (occurrence: None)
  Receive Date: 20220105
  Receipt Date: 20220105
  Transmission Date: 20220423
  Serious: Yes (Hospitalization)
  Sender: FDA-Public Use
  Company Number: None

PATIENT
  Sex: Male

DRUGS (3)
  1. LISINOPRIL [Suspect]
     Active Substance: LISINOPRIL
     Dosage: OTHER QUANTITY : 40MG/0.4ML;?
     Route: 058
  2. PREDNISONE [Concomitant]
     Active Substance: PREDNISONE
  3. HUMIRA [Concomitant]
     Active Substance: ADALIMUMAB

REACTIONS (7)
  - Drug hypersensitivity [None]
  - Swelling [None]
  - Hepatic failure [None]
  - Renal failure [None]
  - Condition aggravated [None]
  - Joint stiffness [None]
  - Fatigue [None]
